FAERS Safety Report 17757735 (Version 1)
Quarter: 2020Q2

REPORT INFORMATION
  Report Type: Spontaneous
  Country: DK (occurrence: DK)
  Receive Date: 20200507
  Receipt Date: 20200507
  Transmission Date: 20200714
  Serious: Yes (Other)
  Sender: FDA-Public Use
  Company Number: DK-ALLERGAN-2018233US

PATIENT
  Sex: Female

DRUGS (2)
  1. PURIMMUN [Concomitant]
     Indication: CROHN^S DISEASE
     Dosage: 50 MG, QD
     Route: 048
     Dates: start: 20190606
  2. CONSTELLA [Suspect]
     Active Substance: LINACLOTIDE
     Indication: CROHN^S DISEASE
     Dosage: 290 ?G, QD
     Route: 048
     Dates: start: 20170315

REACTIONS (3)
  - Off label use [Unknown]
  - Abortion missed [Not Recovered/Not Resolved]
  - Maternal exposure during pregnancy [Unknown]

NARRATIVE: CASE EVENT DATE: 20200218
